FAERS Safety Report 10778739 (Version 1)
Quarter: 2015Q1

REPORT INFORMATION
  Report Type: Spontaneous
  Country: FR (occurrence: FR)
  Receive Date: 20150210
  Receipt Date: 20150210
  Transmission Date: 20150721
  Serious: Yes (Death)
  Sender: FDA-Public Use
  Company Number: FR-ROCHE-1533589

PATIENT
  Age: 63 Year
  Sex: Male

DRUGS (13)
  1. KARDEGIC [Concomitant]
     Active Substance: ASPIRIN LYSINE
     Dosage: 1 DF DAILY
     Route: 065
  2. CALCIT [Concomitant]
  3. FOSAMAX [Concomitant]
     Active Substance: ALENDRONATE SODIUM
  4. TAZOCILLINE [Concomitant]
     Active Substance: PIPERACILLIN SODIUM\TAZOBACTAM SODIUM
  5. OFLOCET [Suspect]
     Active Substance: OFLOXACIN
     Indication: PRODUCT USED FOR UNKNOWN INDICATION
     Route: 048
     Dates: start: 20141206, end: 20141215
  6. XATRAL [Concomitant]
     Active Substance: ALFUZOSIN
  7. BACTRIM [Suspect]
     Active Substance: SULFAMETHOXAZOLE\TRIMETHOPRIM
     Indication: PRODUCT USED FOR UNKNOWN INDICATION
     Route: 048
     Dates: start: 20141206, end: 20141215
  8. FINASTERIDE. [Concomitant]
     Active Substance: FINASTERIDE
  9. NEORAL [Suspect]
     Active Substance: CYCLOSPORINE
     Indication: PRODUCT USED FOR UNKNOWN INDICATION
     Dosage: LONG-TERM TREATMENT
     Route: 048
  10. AMIKACINE [Concomitant]
     Active Substance: AMIKACIN
  11. CELLCEPT [Suspect]
     Active Substance: MYCOPHENOLATE MOFETIL\MYCOPHENOLATE MOFETIL HYDROCHLORIDE
     Indication: PRODUCT USED FOR UNKNOWN INDICATION
     Dosage: LONG-TERM TREATMENT
     Route: 048
  12. VANCOMYCINE [Concomitant]
     Active Substance: VANCOMYCIN
  13. FUROSEMIDE. [Concomitant]
     Active Substance: FUROSEMIDE

REACTIONS (1)
  - Febrile bone marrow aplasia [Fatal]

NARRATIVE: CASE EVENT DATE: 20141215
